FAERS Safety Report 6511344-1 (Version None)
Quarter: 2009Q4

REPORT INFORMATION
  Report Type: 
  Country: None (occurrence: None)
  Receive Date: 20091222
  Receipt Date: 20090302
  Transmission Date: 20100525
  Serious: No
  Sender: FDA-Public Use
  Company Number: US-ASTRAZENECA-2009UW05708

PATIENT
  Sex: Female

DRUGS (9)
  1. CRESTOR [Suspect]
     Indication: LOW DENSITY LIPOPROTEIN INCREASED
     Dosage: 20 MG
     Route: 048
  2. COENZYME Q10 [Concomitant]
  3. ZETIA [Concomitant]
  4. VERAPAMIL [Concomitant]
  5. LISINOPRIL [Concomitant]
  6. BABY ASPIRIN [Concomitant]
  7. FISH OIL [Concomitant]
  8. FLAXSEED [Concomitant]
  9. BENEFIBER [Concomitant]

REACTIONS (2)
  - LOW DENSITY LIPOPROTEIN INCREASED [None]
  - PAIN [None]
